FAERS Safety Report 4587024-9 (Version None)
Quarter: 2005Q1

REPORT INFORMATION
  Report Type: 
  Country: None (occurrence: None)
  Receive Date: 20050218
  Receipt Date: 20041104
  Transmission Date: 20050727
  Serious: Yes (Life-Threatening, Hospitalization, Disabling)
  Sender: FDA-Public Use
  Company Number: US-MERCK-0411USA00862

PATIENT
  Age: 48 Year
  Sex: Female

DRUGS (2)
  1. VIOXX [Suspect]
     Indication: PAIN MANAGEMENT
     Route: 048
     Dates: start: 20040201, end: 20041015
  2. TENORET [Concomitant]
     Route: 065

REACTIONS (3)
  - CARDIOMEGALY [None]
  - CHEST PAIN [None]
  - GASTRIC HAEMORRHAGE [None]
